FAERS Safety Report 9797990 (Version 4)
Quarter: 2014Q1

REPORT INFORMATION
  Report Type: Spontaneous
  Country: GR (occurrence: GR)
  Receive Date: 20140106
  Receipt Date: 20140127
  Transmission Date: 20141002
  Serious: Yes (Other)
  Sender: FDA-Public Use
  Company Number: PHHY2013GR152454

PATIENT
  Sex: Female

DRUGS (1)
  1. TRILEPTAL [Suspect]
     Indication: EPILEPSY
     Dosage: 300 MG, BID
     Dates: start: 2003

REACTIONS (8)
  - Psychiatric symptom [Unknown]
  - Road traffic accident [Unknown]
  - Cerebrovascular accident [Unknown]
  - Libido decreased [Unknown]
  - Aggression [Unknown]
  - Thinking abnormal [Unknown]
  - Headache [Unknown]
  - Overdose [Unknown]
